FAERS Safety Report 12777652 (Version 8)
Quarter: 2017Q3

REPORT INFORMATION
  Report Type: Report from Study
  Country: SK (occurrence: SK)
  Receive Date: 20160924
  Receipt Date: 20170902
  Transmission Date: 20171127
  Serious: Yes (Life-Threatening, Hospitalization, Disabling, Other)
  Sender: FDA-Public Use
  Company Number: SK-AMGEN-SVKNI2016110673

PATIENT
  Age: 25 Year
  Sex: Male

DRUGS (3)
  1. PONATINIB [Concomitant]
     Active Substance: PONATINIB
     Dosage: 15 MG, QD
     Dates: start: 20161126
  2. BLINATUMOMAB [Suspect]
     Active Substance: BLINATUMOMAB
     Indication: B PRECURSOR TYPE ACUTE LEUKAEMIA
     Dosage: 28 MUG, QD
     Route: 042
     Dates: start: 20160803, end: 20160822
  3. PONATINIB [Concomitant]
     Active Substance: PONATINIB
     Dosage: 45 MG, QD

REACTIONS (6)
  - Loss of consciousness [Recovered/Resolved]
  - Aphasia [Recovered/Resolved]
  - Epilepsy [Recovered/Resolved]
  - Dysarthria [Recovered/Resolved]
  - Seizure [Recovered/Resolved]
  - Nausea [Recovered/Resolved]

NARRATIVE: CASE EVENT DATE: 20160810
